FAERS Safety Report 4888125-8 (Version None)
Quarter: 2006Q1

REPORT INFORMATION
  Report Type: 
  Country: None (occurrence: None)
  Receive Date: 20060119
  Receipt Date: 20060109
  Transmission Date: 20060701
  Serious: Yes (Other)
  Sender: FDA-Public Use
  Company Number: 2006006388

PATIENT
  Age: 73 Year
  Sex: Male
  Weight: 63.5036 kg

DRUGS (2)
  1. HALCION [Suspect]
     Indication: INSOMNIA
     Dosage: 0.25 MG (0.25 MG, 1 IN 1 D)
     Dates: start: 19820101
  2. SERAC (OXAZEPAM) [Concomitant]

REACTIONS (10)
  - DRUG EFFECT DECREASED [None]
  - DRUG INEFFECTIVE [None]
  - FEELING ABNORMAL [None]
  - GASTRIC DISORDER [None]
  - GASTRITIS [None]
  - HYPERCHOLESTEROLAEMIA [None]
  - HYPOTHYROIDISM [None]
  - INSOMNIA [None]
  - MYOCARDIAL INFARCTION [None]
  - NIGHTMARE [None]
